FAERS Safety Report 8839582 (Version 1)
Quarter: 2012Q4

REPORT INFORMATION
  Report Type: 
  Country: IN (occurrence: IN)
  Receive Date: 20121015
  Receipt Date: 20121015
  Transmission Date: 20130627
  Serious: Yes (Disabling)
  Sender: FDA-Public Use
  Company Number: PHHY2012IN090703

PATIENT
  Sex: Female

DRUGS (2)
  1. EXELON PATCH [Suspect]
     Indication: DEMENTIA ALZHEIMER^S TYPE
     Dosage: 9.5 mg per 24 hours
     Route: 062
     Dates: start: 20120820, end: 20120921
  2. EXELON PATCH [Suspect]
     Dosage: UNK UKN, UNK
     Route: 062

REACTIONS (1)
  - Dystonia [Recovered/Resolved]
